FAERS Safety Report 4633755-1 (Version None)
Quarter: 2005Q2

REPORT INFORMATION
  Report Type: 
  Country: None (occurrence: None)
  Receive Date: 20050413
  Receipt Date: 20050411
  Transmission Date: 20051028
  Serious: Yes (Other)
  Sender: FDA-Public Use
  Company Number: PHNR2005AU00720

PATIENT
  Age: 37 Year
  Sex: 0

DRUGS (1)
  1. LAMISIL [Suspect]
     Indication: DERMATOPHYTOSIS
     Dosage: 250 MG DAILY
     Route: 048
     Dates: start: 20040901, end: 20041101

REACTIONS (2)
  - EXTRASYSTOLES [None]
  - VENTRICULAR EXTRASYSTOLES [None]
